FAERS Safety Report 10682596 (Version 1)
Quarter: 2014Q4

REPORT INFORMATION
  Report Type: Spontaneous
  Country: US (occurrence: None)
  Receive Date: 20141209
  Receipt Date: 20141209
  Transmission Date: 20150529
  Serious: Yes (Hospitalization)
  Sender: FDA-Public Use
  Company Number: 398498

PATIENT
  Age: 11 Year
  Sex: Female

DRUGS (2)
  1. SYNTHROID [Concomitant]
     Active Substance: LEVOTHYROXINE SODIUM
  2. NOVOLOG [Suspect]
     Active Substance: INSULIN ASPART
     Indication: TYPE 1 DIABETES MELLITUS
     Dosage: 60 U, QD, SUBCUTAN-PUMP
     Dates: start: 20130819

REACTIONS (2)
  - Drug ineffective [None]
  - Diabetic ketoacidosis [None]

NARRATIVE: CASE EVENT DATE: 20140117
